FAERS Safety Report 7301904-2 (Version None)
Quarter: 2011Q1

REPORT INFORMATION
  Report Type: 
  Country: None (occurrence: None)
  Receive Date: 20110218
  Receipt Date: 20110208
  Transmission Date: 20110831
  Serious: Yes (Hospitalization)
  Sender: FDA-Public Use
  Company Number: JP-ROCHE-754396

PATIENT
  Sex: Female
  Weight: 48 kg

DRUGS (13)
  1. AVASTIN [Suspect]
     Route: 041
     Dates: start: 20101130, end: 20101130
  2. KYTRIL [Concomitant]
     Route: 042
     Dates: start: 20100928, end: 20101130
  3. AVASTIN [Suspect]
     Indication: LUNG ADENOCARCINOMA METASTATIC
     Route: 041
     Dates: start: 20100928, end: 20100928
  4. CARBOPLATIN [Concomitant]
     Dosage: NOTE: DOSAGE IS UNCERTAIN.
     Route: 041
     Dates: start: 20100928, end: 20101130
  5. HALCION [Concomitant]
     Route: 048
     Dates: start: 20100922
  6. EVISTA [Concomitant]
     Route: 048
     Dates: start: 20100922
  7. RESTAMIN [Concomitant]
     Route: 048
     Dates: start: 20100928, end: 20101130
  8. AVASTIN [Suspect]
     Route: 041
     Dates: start: 20101109, end: 20101109
  9. FAMOTIDINE [Concomitant]
     Route: 042
     Dates: start: 20100928, end: 20101130
  10. DEXART [Concomitant]
     Route: 042
     Dates: start: 20100928, end: 20101130
  11. ONEALFA [Concomitant]
     Route: 048
     Dates: start: 20100922
  12. AVASTIN [Suspect]
     Route: 041
     Dates: start: 20101019, end: 20101019
  13. PACLITAXEL [Concomitant]
     Dosage: NOTE: DOSAGE IS UNCERTAIN.
     Route: 041
     Dates: start: 20100928, end: 20101130

REACTIONS (3)
  - PROTEINURIA [None]
  - HAEMATURIA [None]
  - HYPOAESTHESIA [None]
